FAERS Safety Report 14820717 (Version 2)
Quarter: 2018Q2

REPORT INFORMATION
  Report Type: Spontaneous
  Country: US (occurrence: US)
  Receive Date: 20180427
  Receipt Date: 20180502
  Transmission Date: 20180711
  Serious: Yes (Hospitalization)
  Sender: FDA-Public Use
  Company Number: US-VERTEX PHARMACEUTICALS-2018-002652

PATIENT
  Sex: Male

DRUGS (23)
  1. SINGULAIR [Concomitant]
     Active Substance: MONTELUKAST SODIUM
     Dosage: 10 MG
  2. SODIUM CHLORIDE. [Concomitant]
     Active Substance: SODIUM CHLORIDE
     Dosage: UNK
     Route: 055
  3. POTASSIUM [Concomitant]
     Active Substance: POTASSIUM
     Dosage: UNK
  4. HYDROCHLOROTHIAZIDE. [Concomitant]
     Active Substance: HYDROCHLOROTHIAZIDE
     Dosage: 12.5 MG
  5. MUCINEX [Concomitant]
     Active Substance: GUAIFENESIN
     Dosage: 1200 MG
  6. CORTEF [Concomitant]
     Active Substance: HYDROCORTISONE
     Dosage: 10 MG
  7. HYDROCODONE/ACETAMINOPHEN [Concomitant]
     Active Substance: ACETAMINOPHEN\HYDROCODONE
     Dosage: UNK
  8. RANITIDINE. [Concomitant]
     Active Substance: RANITIDINE
     Dosage: 150 MG
  9. PULMOZYME [Concomitant]
     Active Substance: DORNASE ALFA
     Dosage: 1 MG
     Route: 055
  10. MEROPENEM. [Concomitant]
     Active Substance: MEROPENEM
     Dosage: 500 MG
  11. CREON [Concomitant]
     Active Substance: PANCRELIPASE AMYLASE\PANCRELIPASE LIPASE\PANCRELIPASE PROTEASE
     Dosage: 12000 UNITS/ GRAM
  12. FLONASE                            /00908302/ [Concomitant]
     Active Substance: MOMETASONE FUROATE
     Dosage: UNK
  13. ORKAMBI [Suspect]
     Active Substance: IVACAFTOR\LUMACAFTOR
     Indication: CYSTIC FIBROSIS
     Dosage: 200/125 MG TABLETS, BID
     Route: 048
     Dates: start: 20160219, end: 20180416
  14. URSODIOL. [Concomitant]
     Active Substance: URSODIOL
     Dosage: 250 MG
  15. TYGACIL [Concomitant]
     Active Substance: TIGECYCLINE
     Dosage: 50 MG
  16. PREVACID [Concomitant]
     Active Substance: LANSOPRAZOLE
     Dosage: 15 MG
  17. SYMBICORT [Concomitant]
     Active Substance: BUDESONIDE\FORMOTEROL FUMARATE DIHYDRATE
     Dosage: 160 MICROGRAM
  18. PROAIR HFA [Concomitant]
     Active Substance: ALBUTEROL SULFATE
     Dosage: UNK
  19. TOBRAMYCIN. [Concomitant]
     Active Substance: TOBRAMYCIN
     Dosage: 300 MG
     Route: 055
  20. CYPROHEPTADINE. [Concomitant]
     Active Substance: CYPROHEPTADINE
     Dosage: UNK
  21. ZYRTEC [Concomitant]
     Active Substance: CETIRIZINE HYDROCHLORIDE
     Dosage: 10 MG
  22. COLISTIN SULFATE [Concomitant]
     Active Substance: COLISTIN SULFATE
     Dosage: UNK
  23. VITAMIN D3 [Concomitant]
     Active Substance: CHOLECALCIFEROL
     Dosage: UNK

REACTIONS (1)
  - Lung transplant [Recovering/Resolving]

NARRATIVE: CASE EVENT DATE: 2018
